FAERS Safety Report 19519724 (Version 1)
Quarter: 2021Q3

REPORT INFORMATION
  Report Type: Report from Study
  Country: IT (occurrence: IT)
  Receive Date: 20210712
  Receipt Date: 20210712
  Transmission Date: 20211014
  Serious: Yes (Hospitalization)
  Sender: FDA-Public Use
  Company Number: IT-ACCORD-231321

PATIENT
  Age: 78 Year
  Sex: Female

DRUGS (13)
  1. GLICLAZIDE [Concomitant]
     Active Substance: GLICLAZIDE
     Route: 048
  2. FIASP [Concomitant]
     Active Substance: INSULIN ASPART
     Route: 058
  3. NORMIX [Concomitant]
     Active Substance: RIFAXIMIN
     Dosage: 200 MG
     Route: 048
  4. OXALIPLATIN. [Suspect]
     Active Substance: OXALIPLATIN
     Indication: ADENOCARCINOMA PANCREAS
     Route: 041
     Dates: start: 20210428, end: 20210601
  5. BROMAZEPAM [Concomitant]
     Active Substance: BROMAZEPAM
     Route: 048
  6. BEZALIP [Concomitant]
     Active Substance: BEZAFIBRATE
     Dosage: 400 MG
     Route: 048
  7. LEVOPRAID [Concomitant]
     Dosage: 25 MG / ML
     Route: 048
  8. PARACETAMOL [Concomitant]
     Active Substance: ACETAMINOPHEN
     Route: 048
  9. ENTACT [Concomitant]
     Active Substance: ESCITALOPRAM OXALATE
     Dosage: 10 MG
     Route: 048
  10. FENTANYL. [Concomitant]
     Active Substance: FENTANYL
     Route: 062
  11. FLUOROURACIL. [Suspect]
     Active Substance: FLUOROURACIL
     Indication: ADENOCARCINOMA PANCREAS
     Route: 041
     Dates: start: 20210428, end: 20210601
  12. LACTOBACILLUS FERMENTUM [Concomitant]
     Dosage: GRANULES FOR ORAL SUSPENSION
     Route: 048
  13. PANTOPRAZOLE [Concomitant]
     Active Substance: PANTOPRAZOLE
     Route: 048

REACTIONS (3)
  - Vomiting [Not Recovered/Not Resolved]
  - Off label use [Unknown]
  - Intestinal obstruction [Not Recovered/Not Resolved]

NARRATIVE: CASE EVENT DATE: 20210602
